FAERS Safety Report 6806191-7 (Version None)
Quarter: 2010Q2

REPORT INFORMATION
  Report Type: 
  Country: None (occurrence: None)
  Receive Date: 20100629
  Receipt Date: 20100614
  Transmission Date: 20101027
  Serious: Yes (Death, Hospitalization)
  Sender: FDA-Public Use
  Company Number: GB-AMGEN-US185483

PATIENT
  Age: 61 Year
  Sex: Female

DRUGS (2)
  1. ETANERCEPT [Suspect]
     Indication: RHEUMATOID ARTHRITIS
     Route: 058
  2. METHOTREXATE [Suspect]
     Indication: RHEUMATOID ARTHRITIS
     Dosage: 25 MG, UNSPECIFIED FREQUENCY
     Dates: start: 19990101

REACTIONS (5)
  - ARRHYTHMIA [None]
  - CONDITION AGGRAVATED [None]
  - METABOLIC ACIDOSIS [None]
  - RENAL FAILURE [None]
  - RHEUMATOID LUNG [None]
